FAERS Safety Report 17053653 (Version 1)
Quarter: 2019Q4

REPORT INFORMATION
  Report Type: Spontaneous
  Country: US (occurrence: US)
  Receive Date: 20191120
  Receipt Date: 20191120
  Transmission Date: 20200122
  Serious: No
  Sender: FDA-Public Use
  Company Number: US-ELI_LILLY_AND_COMPANY-US201911008459

PATIENT
  Age: 39 Year
  Sex: Male

DRUGS (2)
  1. EMGALITY [Suspect]
     Active Substance: GALCANEZUMAB-GNLM
     Indication: PRODUCT USED FOR UNKNOWN INDICATION
     Dosage: 1 DOSAGE FORM, SINGLE
  2. EMGALITY [Suspect]
     Active Substance: GALCANEZUMAB-GNLM
     Dosage: 1 DOSAGE FORM, UNKNOWN

REACTIONS (2)
  - Rash [Recovered/Resolved]
  - Dyspnoea [Recovered/Resolved]
